FAERS Safety Report 9078155 (Version 1)
Quarter: 2013Q1

REPORT INFORMATION
  Report Type: Report from Study
  Country: US (occurrence: US)
  Receive Date: 20130130
  Receipt Date: 20130130
  Transmission Date: 20140127
  Serious: No
  Sender: FDA-Public Use
  Company Number: US-ABBOTT-12P-163-0959235-00

PATIENT
  Sex: Female

DRUGS (11)
  1. HUMIRA 40 MG/0.8 ML PEN [Suspect]
     Indication: CROHN^S DISEASE
     Dates: start: 201206
  2. 6-MP [Concomitant]
     Indication: CROHN^S DISEASE
     Dosage: 2 DAILY
  3. BALSALAZIDE DISODIUM [Concomitant]
     Indication: CROHN^S DISEASE
  4. FISH OIL [Concomitant]
     Indication: MEDICAL DIET
  5. CALCIUM [Concomitant]
     Indication: MINERAL SUPPLEMENTATION
  6. VIT D [Concomitant]
     Indication: VITAMIN SUPPLEMENTATION
  7. VIT C [Concomitant]
     Indication: VITAMIN SUPPLEMENTATION
  8. MULTIVITAMIN [Concomitant]
     Indication: VITAMIN SUPPLEMENTATION
  9. GLUCOSAMINE [Concomitant]
     Indication: MEDICAL DIET
  10. PEPPERMINT OIL [Concomitant]
     Indication: MEDICAL DIET
  11. SLIPPERY ELM [Concomitant]
     Indication: MEDICAL DIET

REACTIONS (3)
  - Device malfunction [Unknown]
  - Incorrect dose administered [Unknown]
  - Injection site pain [Recovered/Resolved]
